FAERS Safety Report 8589361-X (Version None)
Quarter: 2012Q3

REPORT INFORMATION
  Report Type: 
  Country: None (occurrence: None)
  Receive Date: 20120731
  Receipt Date: 20120717
  Transmission Date: 20120928
  Serious: Yes (Hospitalization)
  Sender: FDA-Public Use
  Company Number: 2012PV000041

PATIENT
  Age: 63 Year
  Sex: Female

DRUGS (27)
  1. ZYVOX [Concomitant]
  2. AMIKLIN /00391001 [Concomitant]
  3. COTRIM [Concomitant]
  4. CYCLOPHOSPHAMIDE [Concomitant]
  5. FLUCONAZOLE [Concomitant]
  6. MESNA [Concomitant]
  7. PYOSTACINE [Concomitant]
  8. VANCOMYCIN [Concomitant]
  9. ROCEPHIN [Concomitant]
  10. CYTARABINE [Suspect]
     Indication: ACUTE LYMPHOCYTIC LEUKAEMIA
     Dosage: 50 MG;X3;INTH
     Route: 055
     Dates: start: 20120507, end: 20120524
  11. GLEEVEC [Suspect]
     Indication: ACUTE LYMPHOCYTIC LEUKAEMIA
     Dosage: 400 MG;QD
     Dates: start: 20120510, end: 20120526
  12. VALACYCLOVIR HYDROCHLORIDE [Concomitant]
  13. FLAGYL [Concomitant]
  14. COLIMYCIN /00013203/ [Concomitant]
  15. IMIPENEM AND CILASTATIN SODIUM [Concomitant]
  16. IDARUBICIN HCL [Concomitant]
  17. VINCRISTINE [Concomitant]
  18. AMPHOTERICIN B [Concomitant]
  19. TAZOBACTAM [Concomitant]
  20. VFEND [Concomitant]
  21. HEPARIN [Concomitant]
  22. METHOTREXATE SODIUM [Suspect]
     Indication: ACUTE LYMPHOCYTIC LEUKAEMIA
     Dosage: 15 MG;INTH
     Route: 055
     Dates: start: 20120507, end: 20120524
  23. METHYLPREDNISOLONE [Concomitant]
  24. GENTAMICIN [Concomitant]
  25. VIBRAMYCINE [Concomitant]
  26. CIPROFLOXACIN HCL [Concomitant]
  27. ASPEGIC 1000 [Concomitant]

REACTIONS (8)
  - COMA [None]
  - OEDEMA [None]
  - APLASIA [None]
  - CANDIDA SEPSIS [None]
  - CONVULSION [None]
  - SUBARACHNOID HAEMORRHAGE [None]
  - POSTERIOR REVERSIBLE ENCEPHALOPATHY SYNDROME [None]
  - ISCHAEMIC STROKE [None]
